FAERS Safety Report 9291108 (Version 1)
Quarter: 2013Q2

REPORT INFORMATION
  Report Type: Spontaneous
  Country: US (occurrence: US)
  Receive Date: 20130515
  Receipt Date: 20130515
  Transmission Date: 20140414
  Serious: Yes (Other)
  Sender: FDA-Public Use
  Company Number: US-ASTRAZENECA-2013SE31810

PATIENT
  Age: 68 Year
  Sex: Female

DRUGS (1)
  1. CRESTOR [Suspect]
     Indication: LOW DENSITY LIPOPROTEIN INCREASED
     Route: 048

REACTIONS (2)
  - Hepatitis acute [Unknown]
  - Hepatic enzyme abnormal [Unknown]
